FAERS Safety Report 19415540 (Version 2)
Quarter: 2021Q2

REPORT INFORMATION
  Report Type: Spontaneous
  Country: EC (occurrence: EC)
  Receive Date: 20210615
  Receipt Date: 20210616
  Transmission Date: 20210717
  Serious: Yes (Death, Hospitalization, Other)
  Sender: FDA-Public Use
  Company Number: EC-SA-2021SA196463

PATIENT
  Sex: Female

DRUGS (1)
  1. DUPIXENT [Suspect]
     Active Substance: DUPILUMAB
     Dosage: 300 MG, Q15D
     Route: 058
     Dates: start: 20210409, end: 20210515

REACTIONS (4)
  - Respiratory failure [Fatal]
  - Cardiac arrest [Fatal]
  - Product use issue [Unknown]
  - COVID-19 [Fatal]

NARRATIVE: CASE EVENT DATE: 20210409
